FAERS Safety Report 5044909-7 (Version None)
Quarter: 2006Q2

REPORT INFORMATION
  Report Type: 
  Country: None (occurrence: None)
  Receive Date: 20060601
  Receipt Date: 20060313
  Transmission Date: 20061013
  Serious: No
  Sender: FDA-Public Use
  Company Number: 2006-BP-02817BP

PATIENT
  Sex: Female

DRUGS (7)
  1. SPIRIVA [Suspect]
     Indication: CHRONIC OBSTRUCTIVE PULMONARY DISEASE
     Dosage: 18 MCG (18 MCG ), IH
     Route: 055
     Dates: start: 20060301, end: 20060301
  2. PREVACID [Concomitant]
  3. NEURONTIN [Concomitant]
  4. PREMARIN [Concomitant]
  5. QUININE SULFATE [Concomitant]
  6. DIOVAN [Suspect]
  7. VITAMINE (PYRIDOXINE HYDROCHLORIDE) [Concomitant]

REACTIONS (6)
  - ABDOMINAL PAIN UPPER [None]
  - ARTHRITIS [None]
  - CONSTIPATION [None]
  - DRY THROAT [None]
  - NAUSEA [None]
  - URINARY TRACT INFECTION [None]
